FAERS Safety Report 14976669 (Version 1)
Quarter: 2018Q2

REPORT INFORMATION
  Report Type: Spontaneous
  Country: US (occurrence: US)
  Receive Date: 20180605
  Receipt Date: 20180605
  Transmission Date: 20180711
  Serious: No
  Sender: FDA-Public Use
  Company Number: US-ACTELION-A-NJ2018-172872

PATIENT
  Age: 30 Year
  Sex: Female

DRUGS (2)
  1. UPTRAVI [Suspect]
     Active Substance: SELEXIPAG
     Indication: PULMONARY ARTERIAL HYPERTENSION
     Dosage: 200 MCG, BID
     Route: 048
     Dates: start: 201805, end: 20180520
  2. LETAIRIS [Concomitant]
     Active Substance: AMBRISENTAN

REACTIONS (4)
  - Abdominal discomfort [Unknown]
  - Headache [Unknown]
  - Dyspepsia [Unknown]
  - Drug dose omission [Unknown]

NARRATIVE: CASE EVENT DATE: 201805
